FAERS Safety Report 8969769 (Version 1)
Quarter: 2012Q4

REPORT INFORMATION
  Report Type: 
  Country: US (occurrence: US)
  Receive Date: 20121218
  Receipt Date: 20121218
  Transmission Date: 20130627
  Serious: Yes (Life-Threatening, Hospitalization)
  Sender: FDA-Public Use
  Company Number: US-BRISTOL-MYERS SQUIBB COMPANY-16243982

PATIENT
  Age: 8 Year
  Sex: Male

DRUGS (4)
  1. ABILIFY TABS 5 MG [Suspect]
     Indication: PARANOID PERSONALITY DISORDER
     Dosage: 1 Df : 1/2 tab,QHS,10Oct11,10Nov11
     Route: 048
     Dates: start: 20111007, end: 20111011
  2. CONCERTA [Concomitant]
     Dosage: QAM
     Route: 048
  3. PROZAC [Concomitant]
     Dosage: QAM
     Route: 048
  4. CLONIDINE [Concomitant]
     Dosage: QHS

REACTIONS (1)
  - Neuroleptic malignant syndrome [Unknown]
